FAERS Safety Report 13407477 (Version 1)
Quarter: 2017Q2

REPORT INFORMATION
  Report Type: Report from Study
  Country: None (occurrence: US)
  Receive Date: 20170405
  Receipt Date: 20170405
  Transmission Date: 20170830
  Serious: Yes (Other)
  Sender: FDA-Public Use
  Company Number: US-ABBVIE-17K-163-1930225-00

PATIENT
  Sex: Male

DRUGS (2)
  1. HUMIRA [Suspect]
     Active Substance: ADALIMUMAB
     Route: 058
  2. HUMIRA [Suspect]
     Active Substance: ADALIMUMAB
     Indication: PSORIASIS
     Route: 058
     Dates: start: 201005

REACTIONS (5)
  - Injection site haemorrhage [Recovered/Resolved]
  - Limb injury [Recovered/Resolved]
  - Wound infection [Recovered/Resolved]
  - Accident [Recovered/Resolved]
  - Injection site pain [Recovered/Resolved]
